FAERS Safety Report 8044346-7 (Version None)
Quarter: 2012Q1

REPORT INFORMATION
  Report Type: 
  Country: None (occurrence: None)
  Receive Date: 20120113
  Receipt Date: 20110906
  Transmission Date: 20120608
  Serious: Yes (Life-Threatening, Other)
  Sender: FDA-Public Use
  Company Number: BA-BAYER-2011-083612

PATIENT
  Age: 70 Year
  Sex: Female
  Weight: 86 kg

DRUGS (7)
  1. GLYBURIDE [Concomitant]
     Dosage: UNK
     Dates: start: 19980101
  2. TORSEMIDE [Concomitant]
     Dosage: UNK
     Dates: start: 20080101
  3. AMINOPHYLLIN [AMINOPHYLLINE] [Concomitant]
     Dosage: UNK
     Dates: start: 20070101
  4. AVELOX [Suspect]
     Dosage: 400 MG, QD
     Route: 048
     Dates: start: 20081027, end: 20081029
  5. DIGOXIN [Concomitant]
     Dosage: UNK
     Dates: start: 20060101
  6. LISINOPRIL AND HYDROCHLOROTHIAZIDE [Concomitant]
     Dosage: UNK
     Dates: start: 20070101
  7. FLUTICASONE PROPIONATE [Concomitant]
     Dosage: UNK
     Dates: start: 20060101

REACTIONS (7)
  - SWOLLEN TONGUE [None]
  - VOMITING [None]
  - AMNESIA [None]
  - DYSPNOEA [None]
  - DIZZINESS [None]
  - DIPLOPIA [None]
  - ATRIAL FIBRILLATION [None]
